FAERS Safety Report 8397475-2 (Version None)
Quarter: 2012Q2

REPORT INFORMATION
  Report Type: 
  Country: None (occurrence: None)
  Receive Date: 20120529
  Receipt Date: 20120529
  Transmission Date: 20120825
  Serious: Yes (Life-Threatening, Hospitalization, Disabling)
  Sender: FDA-Public Use
  Company Number: None

PATIENT
  Age: 59 Year
  Sex: Male
  Weight: 95 kg

DRUGS (2)
  1. HEPARIN [Suspect]
     Indication: AORTIC VALVE REPLACEMENT
     Dosage: ONE TIME INTRA-ARTERIAL
     Route: 013
     Dates: start: 20120321, end: 20120321
  2. HEPARIN [Suspect]
     Indication: ANTICOAGULANT THERAPY
     Dosage: ONE TIME INTRA-ARTERIAL
     Route: 013
     Dates: start: 20120321, end: 20120321

REACTIONS (5)
  - POST PROCEDURAL COMPLICATION [None]
  - CARDIAC ARREST [None]
  - METABOLIC ACIDOSIS [None]
  - HEPATIC FAILURE [None]
  - RENAL FAILURE [None]
